FAERS Safety Report 9030454 (Version 1)
Quarter: 2013Q1

REPORT INFORMATION
  Report Type: Spontaneous
  Country: US (occurrence: US)
  Receive Date: 20130122
  Receipt Date: 20130122
  Transmission Date: 20140127
  Serious: Yes (Other)
  Sender: FDA-Public Use
  Company Number: US-PFIZER INC-2013024237

PATIENT
  Age: 42 Year
  Sex: Female

DRUGS (3)
  1. ZOLOFT [Suspect]
     Dosage: UNK
  2. DIAZEPAM [Suspect]
     Dosage: UNK
  3. OXYCONTIN [Suspect]
     Dosage: UNK
     Dates: end: 20121222

REACTIONS (5)
  - Suicidal ideation [Unknown]
  - Judgement impaired [Unknown]
  - Sciatic nerve neuropathy [Unknown]
  - Pain in extremity [Unknown]
  - Anxiety [Unknown]
